FAERS Safety Report 7751045-5 (Version None)
Quarter: 2011Q3

REPORT INFORMATION
  Report Type: 
  Country: None (occurrence: None)
  Receive Date: 20110914
  Receipt Date: 20110909
  Transmission Date: 20111222
  Serious: Yes (Other)
  Sender: FDA-Public Use
  Company Number: US-TEVA-300130USA

PATIENT
  Sex: Female
  Weight: 72.64 kg

DRUGS (3)
  1. CYMBALTA [Concomitant]
     Indication: ANXIETY
  2. PLAN B ONE-STEP [Suspect]
     Indication: POST COITAL CONTRACEPTION
     Dosage: 1.5 MILLIGRAM;
     Route: 048
     Dates: start: 20100527, end: 20100527
  3. CYMBALTA [Concomitant]
     Indication: DEPRESSION
     Dates: start: 20060101

REACTIONS (3)
  - ABORTION SPONTANEOUS [None]
  - PREGNANCY AFTER POST COITAL CONTRACEPTION [None]
  - DRUG INEFFECTIVE [None]
